FAERS Safety Report 9407436 (Version 1)
Quarter: 2013Q3

REPORT INFORMATION
  Report Type: Spontaneous
  Country: FR (occurrence: FR)
  Receive Date: 20130718
  Receipt Date: 20130718
  Transmission Date: 20140515
  Serious: Yes (Hospitalization)
  Sender: FDA-Public Use
  Company Number: FR-ABBOTT-13X-056-1120377-00

PATIENT
  Age: 63 Year
  Sex: Female

DRUGS (2)
  1. ZECLAR [Suspect]
     Indication: HELICOBACTER INFECTION
     Route: 048
     Dates: start: 20130701, end: 20130704
  2. CLAMOXYL [Concomitant]
     Indication: HELICOBACTER INFECTION
     Route: 048
     Dates: start: 20130701

REACTIONS (6)
  - Malaise [Recovering/Resolving]
  - Visual impairment [Recovering/Resolving]
  - Balance disorder [Recovering/Resolving]
  - Deafness unilateral [Not Recovered/Not Resolved]
  - Swelling [Recovering/Resolving]
  - Erythema [Recovering/Resolving]
